FAERS Safety Report 8313430-2 (Version None)
Quarter: 2012Q2

REPORT INFORMATION
  Report Type: 
  Country: None (occurrence: None)
  Receive Date: 20120426
  Receipt Date: 20120417
  Transmission Date: 20120825
  Serious: Yes (Other)
  Sender: FDA-Public Use
  Company Number: PHHY2012US033894

PATIENT
  Age: 28 Year
  Sex: Female

DRUGS (2)
  1. DEFERASIROX [Suspect]
     Indication: IRON OVERLOAD
     Dosage: UNK
  2. DEFEROXAMINE MESYLATE [Suspect]
     Indication: IRON OVERLOAD
     Dosage: UNK UKN, UNK

REACTIONS (6)
  - HYPERSPLENISM [None]
  - ABDOMINAL PAIN [None]
  - THROMBOCYTOPENIA [None]
  - CARDIAC DISORDER [None]
  - HAEMOSIDEROSIS [None]
  - GLUCOSE TOLERANCE IMPAIRED [None]
